FAERS Safety Report 26074862 (Version 1)
Quarter: 2025Q4

REPORT INFORMATION
  Report Type: Spontaneous
  Country: BA (occurrence: BA)
  Receive Date: 20251121
  Receipt Date: 20251121
  Transmission Date: 20260117
  Serious: Yes (Other)
  Sender: RANBAXY
  Company Number: BA-SUN PHARMACEUTICAL INDUSTRIES INC-2025RR-536467

PATIENT
  Age: 35 Year
  Sex: Male

DRUGS (1)
  1. QUETIAPINE [Suspect]
     Active Substance: QUETIAPINE
     Indication: Delirium tremens
     Dosage: UNK, 25-50 MILLIGRAM
     Route: 065
     Dates: start: 20240818

REACTIONS (1)
  - Condition aggravated [Recovered/Resolved]
